FAERS Safety Report 20901408 (Version 1)
Quarter: 2022Q2

REPORT INFORMATION
  Report Type: Spontaneous
  Country: US (occurrence: None)
  Receive Date: 20220601
  Receipt Date: 20220601
  Transmission Date: 20220721
  Serious: Yes (Disabling)
  Sender: FDA-Public Use
  Company Number: None

PATIENT
  Age: 77 Year
  Sex: Female
  Weight: 63 kg

DRUGS (10)
  1. TYRVAYA [Suspect]
     Active Substance: VARENICLINE TARTRATE
     Indication: Dry eye
  2. ESTRACE [Concomitant]
     Active Substance: ESTRADIOL
  3. ESTRADIOL [Concomitant]
     Active Substance: ESTRADIOL
  4. OXYBUTYNIN [Concomitant]
     Active Substance: OXYBUTYNIN
  5. OMEGA-3 ACIDS [Concomitant]
     Active Substance: OMEGA-3 FATTY ACIDS
  6. CEQUA [Concomitant]
     Active Substance: CYCLOSPORINE
  7. Autologuf [Concomitant]
  8. VITAMIN B12 [Concomitant]
     Active Substance: CYANOCOBALAMIN
  9. Ocuden2 [Concomitant]
  10. TYLENOL [Concomitant]
     Active Substance: ACETAMINOPHEN

REACTIONS (2)
  - Arthralgia [None]
  - Device use issue [None]

NARRATIVE: CASE EVENT DATE: 20220601
